FAERS Safety Report 21859926 (Version 2)
Quarter: 2023Q1

REPORT INFORMATION
  Report Type: Report from Study
  Country: US (occurrence: None)
  Receive Date: 20230113
  Receipt Date: 20230127
  Transmission Date: 20230417
  Serious: Yes (Hospitalization)
  Sender: FDA-Public Use
  Company Number: US-Merck Healthcare KGaA-9376635

PATIENT
  Sex: Female

DRUGS (1)
  1. MAVENCLAD [Suspect]
     Active Substance: CLADRIBINE
     Indication: Multiple sclerosis
     Dosage: YEAR ONE MONTH ONE THERAPY.
     Route: 048
     Dates: start: 20221212

REACTIONS (5)
  - Decubitus ulcer [Unknown]
  - Infected skin ulcer [Unknown]
  - Urinary tract infection [Unknown]
  - Feeling abnormal [Unknown]
  - Overdose [Unknown]
